FAERS Safety Report 6583188-6 (Version None)
Quarter: 2010Q1

REPORT INFORMATION
  Report Type: 
  Country: None (occurrence: None)
  Receive Date: 20100216
  Receipt Date: 20100207
  Transmission Date: 20100710
  Serious: Yes (Hospitalization)
  Sender: FDA-Public Use
  Company Number: US-SANOFI-AVENTIS-2010SA008145

PATIENT
  Sex: Female

DRUGS (5)
  1. DIABETA [Suspect]
     Route: 065
  2. LANTUS [Concomitant]
     Indication: BLOOD GLUCOSE INCREASED
     Route: 058
     Dates: start: 20100101
  3. METFORMIN HCL [Concomitant]
     Dates: end: 20100101
  4. AVANDIA [Concomitant]
     Dates: end: 20100101
  5. JANUVIA [Concomitant]

REACTIONS (2)
  - BLOOD GLUCOSE INCREASED [None]
  - CARDIAC FAILURE CONGESTIVE [None]
